FAERS Safety Report 21407900 (Version 2)
Quarter: 2022Q4

REPORT INFORMATION
  Report Type: Spontaneous
  Country: GB (occurrence: None)
  Receive Date: 20221004
  Receipt Date: 20221118
  Transmission Date: 20230113
  Serious: Yes (Disabling, Other)
  Sender: FDA-Public Use
  Company Number: 2022A331331

PATIENT
  Age: 68 Year
  Sex: Male

DRUGS (7)
  1. TICAGRELOR [Suspect]
     Active Substance: TICAGRELOR
     Dosage: 180, 1 / DAY
     Route: 065
  2. FINASTERIDE [Suspect]
     Active Substance: FINASTERIDE
     Route: 065
  3. ATORVASTATIN [Suspect]
     Active Substance: ATORVASTATIN
     Dosage: 40, 1 / DAY
     Route: 065
  4. ATORVASTATIN [Suspect]
     Active Substance: ATORVASTATIN
     Dosage: 80, 1 / DAY
     Route: 065
  5. ATORVASTATIN [Suspect]
     Active Substance: ATORVASTATIN
     Dosage: 20, 1 / DAY, BEDTIME
     Route: 065
  6. TAMSULOSIN [Suspect]
     Active Substance: TAMSULOSIN
     Route: 065
  7. ASPIRIN [Concomitant]
     Active Substance: ASPIRIN
     Dosage: 75 , 1 / DAY, MORNING
     Route: 065

REACTIONS (11)
  - Muscular weakness [Unknown]
  - Condition aggravated [Unknown]
  - Fatigue [Unknown]
  - Peripheral swelling [Unknown]
  - Insomnia [Unknown]
  - Skin tightness [Unknown]
  - Movement disorder [Unknown]
  - Abnormal weight gain [Unknown]
  - Pain in extremity [Unknown]
  - Pruritus [Unknown]
  - Depression [Unknown]
